FAERS Safety Report 18340225 (Version 1)
Quarter: 2020Q4

REPORT INFORMATION
  Report Type: Spontaneous
  Country: LV (occurrence: LV)
  Receive Date: 20201002
  Receipt Date: 20201002
  Transmission Date: 20210113
  Serious: Yes (Hospitalization)
  Sender: FDA-Public Use
  Company Number: LV-TEVA-2020-LV-1833450

PATIENT
  Age: 78 Year
  Sex: Female
  Weight: 70 kg

DRUGS (7)
  1. ATORVASTATIN 20 MG [Concomitant]
     Active Substance: ATORVASTATIN
  2. METOPROLOL RATIOPHARM 50 MG TABLETES [Suspect]
     Active Substance: METOPROLOL
     Indication: CORONARY ARTERY DISEASE
     Dosage: 50 MG
     Route: 048
     Dates: start: 20200603, end: 20200720
  3. L-THYROXIN BERLIN-CHEMIE 50 MIKROGRAMU TABLETES [Concomitant]
  4. TENAXUM 1 MG TABLETES [Concomitant]
  5. METOPROLOL RATIOPHARM 50 MG TABLETES [Suspect]
     Active Substance: METOPROLOL
     Indication: HYPERTENSION
  6. NOLPAZA 20 MG [Concomitant]
  7. NOLIPREL FORTE ARGININE APVALKOTAS TABLETES 5 MG/1,25 MG [Concomitant]

REACTIONS (1)
  - Ventricular extrasystoles [Recovered/Resolved]

NARRATIVE: CASE EVENT DATE: 20200723
